FAERS Safety Report 12823864 (Version 1)
Quarter: 2016Q4

REPORT INFORMATION
  Report Type: Spontaneous
  Country: AU (occurrence: AU)
  Receive Date: 20161006
  Receipt Date: 20161006
  Transmission Date: 20170207
  Serious: Yes (Hospitalization)
  Sender: FDA-Public Use
  Company Number: AU-TEVA-697370ISR

PATIENT

DRUGS (31)
  1. PARACETAMOL [Suspect]
     Active Substance: ACETAMINOPHEN
     Route: 065
  2. AZATHIOPRINE. [Suspect]
     Active Substance: AZATHIOPRINE
     Route: 065
  3. RAMIPRIL. [Suspect]
     Active Substance: RAMIPRIL
     Route: 065
  4. IRBESARTAN. [Suspect]
     Active Substance: IRBESARTAN
     Route: 065
  5. AMOXICILLIN WITH CLAVULANIC ACID [Suspect]
     Active Substance: AMOXICILLIN\CLAVULANIC ACID
     Route: 065
  6. ACETAMINOPHEN AND CODEINE [Suspect]
     Active Substance: ACETAMINOPHEN\CODEINE PHOSPHATE
     Route: 065
  7. BICALUTAMIDE. [Suspect]
     Active Substance: BICALUTAMIDE
     Route: 065
  8. SIMVASTATIN. [Suspect]
     Active Substance: SIMVASTATIN
     Route: 065
  9. CLARITHROMYCIN. [Suspect]
     Active Substance: CLARITHROMYCIN
     Route: 065
  10. VENLAFAXINE [Suspect]
     Active Substance: VENLAFAXINE HYDROCHLORIDE
     Route: 065
  11. ISOSORBIDE MONONITRATE. [Suspect]
     Active Substance: ISOSORBIDE MONONITRATE
     Route: 065
  12. METOPROLOL. [Suspect]
     Active Substance: METOPROLOL
     Route: 065
  13. DOXYCYCLINE. [Suspect]
     Active Substance: DOXYCYCLINE
     Route: 065
  14. SERTRALINE [Suspect]
     Active Substance: SERTRALINE HYDROCHLORIDE
     Route: 065
  15. OLANZAPINE. [Suspect]
     Active Substance: OLANZAPINE
     Route: 065
  16. OMEPRAZOLE. [Suspect]
     Active Substance: OMEPRAZOLE
     Route: 065
  17. AMOXICILLIN. [Suspect]
     Active Substance: AMOXICILLIN
     Route: 065
  18. DILTIAZEM. [Suspect]
     Active Substance: DILTIAZEM
     Route: 065
  19. CEFALEXIN [Suspect]
     Active Substance: CEPHALEXIN
     Route: 065
  20. CYPROTERONE [Suspect]
     Active Substance: CYPROTERONE
     Route: 065
  21. MELOXICAM. [Suspect]
     Active Substance: MELOXICAM
     Route: 065
  22. ATENOLOL. [Suspect]
     Active Substance: ATENOLOL
     Route: 065
  23. TRAMADOL. [Suspect]
     Active Substance: TRAMADOL
     Route: 065
  24. PRAVASTATIN. [Suspect]
     Active Substance: PRAVASTATIN
     Route: 065
  25. ATORVASTATIN [Suspect]
     Active Substance: ATORVASTATIN
     Route: 065
  26. ESOMEPRAZOLE [Suspect]
     Active Substance: ESOMEPRAZOLE
     Route: 065
  27. ROXITHROMYCIN [Suspect]
     Active Substance: ROXITHROMYCIN
     Route: 065
  28. METFORMIN [Suspect]
     Active Substance: METFORMIN HYDROCHLORIDE
     Route: 065
  29. CLOPIDOGREL [Suspect]
     Active Substance: CLOPIDOGREL BISULFATE
     Route: 065
  30. ALLOPURINOL. [Suspect]
     Active Substance: ALLOPURINOL
     Route: 065
  31. GABAPENTIN. [Suspect]
     Active Substance: GABAPENTIN
     Route: 065

REACTIONS (1)
  - Drug-induced liver injury [Unknown]
